FAERS Safety Report 9327756 (Version 1)
Quarter: 2013Q2

REPORT INFORMATION
  Report Type: Spontaneous
  Country: US (occurrence: US)
  Receive Date: 20130604
  Receipt Date: 20130604
  Transmission Date: 20140414
  Serious: No
  Sender: FDA-Public Use
  Company Number: US-AMGEN-USASP2012077250

PATIENT
  Age: 72 Year
  Sex: Female
  Weight: 104.76 kg

DRUGS (16)
  1. ENBREL [Suspect]
     Indication: RHEUMATOID ARTHRITIS
     Dosage: 50 MG, WEEKLY
     Dates: start: 20121130, end: 20130405
  2. ENBREL [Suspect]
     Indication: OSTEOARTHRITIS
  3. ARAVA [Suspect]
     Dosage: UNK
     Dates: end: 201302
  4. VITAMIN D3 [Concomitant]
     Dosage: 1000 IU, QD
  5. PRILOSEC                           /00661201/ [Concomitant]
     Dosage: 20 MG, QD
  6. XALATAN [Concomitant]
     Dosage: 0.005 %, QD, ONE DROP INTO EACH EYE
     Route: 047
  7. METRONIDAZOLE [Concomitant]
     Dosage: 1 %, QD
     Route: 061
  8. VANIQA                             /00936001/ [Concomitant]
     Dosage: 30 G, ONE TO TWO TIMES A DAY
  9. ALPRAZOLAM [Concomitant]
     Dosage: 0.25 UNK, AS NECESSARY
  10. FLEXERIL                           /00428402/ [Concomitant]
     Dosage: 5 MG, TID
  11. LEXAPRO [Concomitant]
     Dosage: 10 MG, QD
  12. LOTREL [Concomitant]
     Dosage: 2.5MG TO 10MG, QD
  13. LEVOTHYROXINE [Concomitant]
     Dosage: 75 MUG, QD
  14. PLAQUENIL                          /00072603/ [Concomitant]
     Dosage: 200 MG, BID
  15. PREDNISONE [Concomitant]
     Dosage: 2.5 MG, QD
  16. SIMPONI [Concomitant]
     Dosage: 50 MG, QMO

REACTIONS (9)
  - Arthralgia [Not Recovered/Not Resolved]
  - Musculoskeletal stiffness [Not Recovered/Not Resolved]
  - Pain in extremity [Not Recovered/Not Resolved]
  - Back pain [Not Recovered/Not Resolved]
  - Joint stiffness [Not Recovered/Not Resolved]
  - Drug ineffective [Not Recovered/Not Resolved]
  - Alopecia [Recovering/Resolving]
  - Sciatica [Unknown]
  - Injection site reaction [Recovering/Resolving]
